FAERS Safety Report 7590333-2 (Version None)
Quarter: 2011Q3

REPORT INFORMATION
  Report Type: 
  Country: None (occurrence: None)
  Receive Date: 20110705
  Receipt Date: 20110627
  Transmission Date: 20111222
  Serious: Yes (Hospitalization, Other)
  Sender: FDA-Public Use
  Company Number: US-BAYER-201039866NA

PATIENT
  Age: 43 Year
  Sex: Female
  Weight: 95 kg

DRUGS (8)
  1. YASMIN [Suspect]
     Indication: PREMENSTRUAL SYNDROME
     Dates: start: 20090301, end: 20091001
  2. YASMIN [Suspect]
     Dosage: UNK
     Dates: start: 20090201, end: 20090301
  3. DROSPIRENONE AND ETHINYL ESTRADIOL [Suspect]
     Dosage: UNK
     Dates: start: 20090301, end: 20090801
  4. ADVIL LIQUI-GELS [Concomitant]
     Dosage: UNK UNK, PRN
  5. DROSPIRENONE AND ETHINYL ESTRADIOL [Suspect]
     Indication: PREMENSTRUAL SYNDROME
     Dates: start: 20090301, end: 20091001
  6. CYMBALTA [Concomitant]
     Indication: PREMENSTRUAL SYNDROME
     Dosage: UNK
     Dates: start: 20081001
  7. AMBIEN [Concomitant]
     Indication: INSOMNIA
     Dosage: UNK
     Dates: start: 20080401
  8. WELLBUTRIN [Concomitant]
     Indication: PREMENSTRUAL SYNDROME
     Dosage: UNK
     Dates: start: 20061101

REACTIONS (2)
  - CHOLELITHIASIS [None]
  - ABDOMINAL PAIN UPPER [None]
